FAERS Safety Report 12536228 (Version 14)
Quarter: 2017Q2

REPORT INFORMATION
  Report Type: Report from Study
  Country: US (occurrence: US)
  Receive Date: 20160707
  Receipt Date: 20170518
  Transmission Date: 20170830
  Serious: Yes (Hospitalization, Congenital Anomaly, Other)
  Sender: FDA-Public Use
  Company Number: US-GLAXOSMITHKLINE-US2016GSK095955

PATIENT
  Age: 0 Year
  Sex: Female
  Weight: 2.27 kg

DRUGS (14)
  1. ANCEF [Concomitant]
     Active Substance: CEFAZOLIN SODIUM
  2. LASIX [Concomitant]
     Active Substance: FUROSEMIDE
     Dosage: 20 MG, QD
     Dates: start: 20151231, end: 20160107
  3. BELIMUMAB [Suspect]
     Active Substance: BELIMUMAB
     Indication: SYSTEMIC LUPUS ERYTHEMATOSUS
     Dosage: UNK UNK, U
     Route: 064
     Dates: start: 2013, end: 20150818
  4. MACRODANTIN [Concomitant]
     Active Substance: NITROFURANTOIN
     Indication: URINARY TRACT INFECTION
  5. POTASSIUM CHLORIDE. [Concomitant]
     Active Substance: POTASSIUM CHLORIDE
     Dosage: UNK
     Dates: start: 20160126
  6. PLAQUENIL [Concomitant]
     Active Substance: HYDROXYCHLOROQUINE SULFATE
  7. ISORDIL [Concomitant]
     Active Substance: ISOSORBIDE DINITRATE
  8. APRESOLINE HYDROCHLORIDE [Concomitant]
     Active Substance: HYDRALAZINE HYDROCHLORIDE
  9. PROCARDIA [Concomitant]
     Active Substance: NIFEDIPINE
  10. COREG [Concomitant]
     Active Substance: CARVEDILOL
  11. LASIX [Concomitant]
     Active Substance: FUROSEMIDE
     Dosage: 60 MG, QD
     Dates: start: 20160107, end: 201603
  12. FOLATE [Concomitant]
     Active Substance: FOLATE SODIUM
  13. ASPIRIN. [Concomitant]
     Active Substance: ASPIRIN
     Dosage: UNK
     Dates: end: 201509
  14. BETAMETHASONE. [Concomitant]
     Active Substance: BETAMETHASONE
     Dosage: UNK
     Dates: start: 20160217

REACTIONS (7)
  - Foetal exposure during pregnancy [Unknown]
  - Pneumonia [Recovered/Resolved]
  - Premature baby [Recovered/Resolved]
  - Tricuspid valve incompetence [Unknown]
  - Cardiac murmur [Unknown]
  - Patent ductus arteriosus [Recovered/Resolved]
  - Atrial septal defect [Recovered/Resolved]

NARRATIVE: CASE EVENT DATE: 20160210
